FAERS Safety Report 7310962-0 (Version None)
Quarter: 2011Q1

REPORT INFORMATION
  Report Type: 
  Country: None (occurrence: None)
  Receive Date: 20110224
  Receipt Date: 20110216
  Transmission Date: 20110831
  Serious: Yes (Hospitalization, Other)
  Sender: FDA-Public Use
  Company Number: US-GENZYME-FABR-1001682

PATIENT
  Sex: Male

DRUGS (12)
  1. FABRAZYME [Suspect]
     Dosage: 70 MG, Q2W
     Route: 042
     Dates: start: 20030723
  2. ENALAPRIL MALEATE [Concomitant]
     Indication: PRODUCT USED FOR UNKNOWN INDICATION
  3. BENADRYL [Concomitant]
     Indication: PREMEDICATION
  4. CARDIZEM [Concomitant]
     Indication: PRODUCT USED FOR UNKNOWN INDICATION
  5. FABRAZYME [Suspect]
     Indication: FABRY'S DISEASE
     Dosage: 15 MG, Q4W
     Route: 042
  6. ACETAMINOPHEN [Concomitant]
     Indication: PREMEDICATION
  7. CORTICOSTEROID NOS [Concomitant]
     Indication: PREMEDICATION
  8. COUMADIN [Concomitant]
     Indication: PRODUCT USED FOR UNKNOWN INDICATION
  9. PRILOSEC [Concomitant]
     Indication: PRODUCT USED FOR UNKNOWN INDICATION
  10. FOSAMAX [Concomitant]
     Indication: PRODUCT USED FOR UNKNOWN INDICATION
  11. FABRAZYME [Suspect]
     Dosage: 35 MG, Q2W
     Route: 042
  12. LASIX [Concomitant]
     Indication: PRODUCT USED FOR UNKNOWN INDICATION

REACTIONS (4)
  - GALLBLADDER DISORDER [None]
  - ATRIAL FIBRILLATION [None]
  - HERNIA [None]
  - WEIGHT INCREASED [None]
